FAERS Safety Report 7006391-X (Version None)
Quarter: 2010Q3

REPORT INFORMATION
  Report Type: 
  Country: None (occurrence: None)
  Receive Date: 20100909
  Receipt Date: 20100901
  Transmission Date: 20110219
  Serious: Yes (Hospitalization)
  Sender: FDA-Public Use
  Company Number: WAES 1008USA01939

PATIENT
  Age: 53 Year
  Sex: Female
  Weight: 63.05 kg

DRUGS (64)
  1. CAP VORINOSTAT UNK [Suspect]
     Indication: NODAL MARGINAL ZONE B-CELL LYMPHOMA
     Dosage: 200 MG/BID/PO, 200 MG/DAILY/PO
     Route: 048
     Dates: start: 20090528, end: 20090610
  2. CAP VORINOSTAT UNK [Suspect]
     Indication: NODAL MARGINAL ZONE B-CELL LYMPHOMA
     Dosage: 200 MG/BID/PO, 200 MG/DAILY/PO
     Route: 048
     Dates: start: 20090618, end: 20090701
  3. CAP VORINOSTAT UNK [Suspect]
     Indication: NODAL MARGINAL ZONE B-CELL LYMPHOMA
     Dosage: 200 MG/BID/PO, 200 MG/DAILY/PO
     Route: 048
     Dates: start: 20090709, end: 20090722
  4. CAP VORINOSTAT UNK [Suspect]
     Indication: NODAL MARGINAL ZONE B-CELL LYMPHOMA
     Dosage: 200 MG/BID/PO, 200 MG/DAILY/PO
     Route: 048
     Dates: start: 20090731, end: 20090813
  5. CAP VORINOSTAT UNK [Suspect]
     Indication: NODAL MARGINAL ZONE B-CELL LYMPHOMA
     Dosage: 200 MG/BID/PO, 200 MG/DAILY/PO
     Route: 048
     Dates: start: 20090821, end: 20090903
  6. CAP VORINOSTAT UNK [Suspect]
     Indication: NODAL MARGINAL ZONE B-CELL LYMPHOMA
     Dosage: 200 MG/BID/PO, 200 MG/DAILY/PO
     Route: 048
     Dates: start: 20090911, end: 20090921
  7. CAP VORINOSTAT UNK [Suspect]
     Indication: NODAL MARGINAL ZONE B-CELL LYMPHOMA
     Dosage: 200 MG/BID/PO, 200 MG/DAILY/PO
     Route: 048
     Dates: start: 20090922, end: 20090922
  8. CAP VORINOSTAT UNK [Suspect]
     Indication: NODAL MARGINAL ZONE B-CELL LYMPHOMA
     Dosage: 200 MG/BID/PO, 200 MG/DAILY/PO
     Route: 048
     Dates: start: 20090923, end: 20090924
  9. CAP VORINOSTAT UNK [Suspect]
     Indication: NODAL MARGINAL ZONE B-CELL LYMPHOMA
     Dosage: 200 MG/BID/PO, 200 MG/DAILY/PO
     Route: 048
     Dates: start: 20091002, end: 20091013
  10. CAP VORINOSTAT UNK [Suspect]
     Indication: NODAL MARGINAL ZONE B-CELL LYMPHOMA
     Dosage: 200 MG/BID/PO, 200 MG/DAILY/PO
     Route: 048
     Dates: start: 20091014, end: 20091014
  11. CAP VORINOSTAT UNK [Suspect]
     Indication: NODAL MARGINAL ZONE B-CELL LYMPHOMA
     Dosage: 200 MG/BID/PO, 200 MG/DAILY/PO
     Route: 048
     Dates: start: 20091015, end: 20091015
  12. CAP VORINOSTAT UNK [Suspect]
     Indication: NODAL MARGINAL ZONE B-CELL LYMPHOMA
     Dosage: 200 MG/BID/PO, 200 MG/DAILY/PO
     Route: 048
     Dates: start: 20091023, end: 20091023
  13. CAP VORINOSTAT UNK [Suspect]
     Indication: NODAL MARGINAL ZONE B-CELL LYMPHOMA
     Dosage: 200 MG/BID/PO, 200 MG/DAILY/PO
     Route: 048
     Dates: start: 20091025, end: 20091105
  14. CAP VORINOSTAT UNK [Suspect]
     Indication: NODAL MARGINAL ZONE B-CELL LYMPHOMA
     Dosage: 200 MG/BID/PO, 200 MG/DAILY/PO
     Route: 048
     Dates: start: 20091113, end: 20091125
  15. CAP VORINOSTAT UNK [Suspect]
     Indication: NODAL MARGINAL ZONE B-CELL LYMPHOMA
     Dosage: 200 MG/BID/PO, 200 MG/DAILY/PO
     Route: 048
     Dates: start: 20091126, end: 20091126
  16. CAP VORINOSTAT UNK [Suspect]
     Indication: NODAL MARGINAL ZONE B-CELL LYMPHOMA
     Dosage: 200 MG/BID/PO, 200 MG/DAILY/PO
     Route: 048
     Dates: start: 20091204, end: 20091208
  17. CAP VORINOSTAT UNK [Suspect]
     Indication: NODAL MARGINAL ZONE B-CELL LYMPHOMA
     Dosage: 200 MG/BID/PO, 200 MG/DAILY/PO
     Route: 048
     Dates: start: 20091209, end: 20091209
  18. CAP VORINOSTAT UNK [Suspect]
     Indication: NODAL MARGINAL ZONE B-CELL LYMPHOMA
     Dosage: 200 MG/BID/PO, 200 MG/DAILY/PO
     Route: 048
     Dates: start: 20091210, end: 20091217
  19. CAP VORINOSTAT UNK [Suspect]
     Indication: NODAL MARGINAL ZONE B-CELL LYMPHOMA
     Dosage: 200 MG/BID/PO, 200 MG/DAILY/PO
     Route: 048
     Dates: start: 20091225, end: 20091227
  20. CAP VORINOSTAT UNK [Suspect]
     Indication: NODAL MARGINAL ZONE B-CELL LYMPHOMA
     Dosage: 200 MG/BID/PO, 200 MG/DAILY/PO
     Route: 048
     Dates: start: 20091228, end: 20091228
  21. CAP VORINOSTAT UNK [Suspect]
     Indication: NODAL MARGINAL ZONE B-CELL LYMPHOMA
     Dosage: 200 MG/BID/PO, 200 MG/DAILY/PO
     Route: 048
     Dates: start: 20091229, end: 20100101
  22. CAP VORINOSTAT UNK [Suspect]
     Indication: NODAL MARGINAL ZONE B-CELL LYMPHOMA
     Dosage: 200 MG/BID/PO, 200 MG/DAILY/PO
     Route: 048
     Dates: start: 20100102, end: 20100102
  23. CAP VORINOSTAT UNK [Suspect]
     Indication: NODAL MARGINAL ZONE B-CELL LYMPHOMA
     Dosage: 200 MG/BID/PO, 200 MG/DAILY/PO
     Route: 048
     Dates: start: 20100103, end: 20100107
  24. CAP VORINOSTAT UNK [Suspect]
     Indication: NODAL MARGINAL ZONE B-CELL LYMPHOMA
     Dosage: 200 MG/BID/PO, 200 MG/DAILY/PO
     Route: 048
     Dates: start: 20100115, end: 20100115
  25. CAP VORINOSTAT UNK [Suspect]
     Indication: NODAL MARGINAL ZONE B-CELL LYMPHOMA
     Dosage: 200 MG/BID/PO, 200 MG/DAILY/PO
     Route: 048
     Dates: start: 20100116, end: 20100117
  26. CAP VORINOSTAT UNK [Suspect]
     Indication: NODAL MARGINAL ZONE B-CELL LYMPHOMA
     Dosage: 200 MG/BID/PO, 200 MG/DAILY/PO
     Route: 048
     Dates: start: 20100118, end: 20100128
  27. CAP VORINOSTAT UNK [Suspect]
     Indication: NODAL MARGINAL ZONE B-CELL LYMPHOMA
     Dosage: 200 MG/BID/PO, 200 MG/DAILY/PO
     Route: 048
     Dates: start: 20100205, end: 20100214
  28. CAP VORINOSTAT UNK [Suspect]
     Indication: NODAL MARGINAL ZONE B-CELL LYMPHOMA
     Dosage: 200 MG/BID/PO, 200 MG/DAILY/PO
     Route: 048
     Dates: start: 20100215, end: 20100216
  29. CAP VORINOSTAT UNK [Suspect]
     Indication: NODAL MARGINAL ZONE B-CELL LYMPHOMA
     Dosage: 200 MG/BID/PO, 200 MG/DAILY/PO
     Route: 048
     Dates: start: 20100217, end: 20100217
  30. CAP VORINOSTAT UNK [Suspect]
     Indication: NODAL MARGINAL ZONE B-CELL LYMPHOMA
     Dosage: 200 MG/BID/PO, 200 MG/DAILY/PO
     Route: 048
     Dates: start: 20100218, end: 20100218
  31. CAP VORINOSTAT UNK [Suspect]
     Indication: NODAL MARGINAL ZONE B-CELL LYMPHOMA
     Dosage: 200 MG/BID/PO, 200 MG/DAILY/PO
     Route: 048
     Dates: start: 20100226, end: 20100301
  32. CAP VORINOSTAT UNK [Suspect]
     Indication: NODAL MARGINAL ZONE B-CELL LYMPHOMA
     Dosage: 200 MG/BID/PO, 200 MG/DAILY/PO
     Route: 048
     Dates: start: 20100302, end: 20100303
  33. CAP VORINOSTAT UNK [Suspect]
     Indication: NODAL MARGINAL ZONE B-CELL LYMPHOMA
     Dosage: 200 MG/BID/PO, 200 MG/DAILY/PO
     Route: 048
     Dates: start: 20100304, end: 20100310
  34. CAP VORINOSTAT UNK [Suspect]
     Indication: NODAL MARGINAL ZONE B-CELL LYMPHOMA
     Dosage: 200 MG/BID/PO, 200 MG/DAILY/PO
     Route: 048
     Dates: start: 20100311, end: 20100311
  35. CAP VORINOSTAT UNK [Suspect]
     Indication: NODAL MARGINAL ZONE B-CELL LYMPHOMA
     Dosage: 200 MG/BID/PO, 200 MG/DAILY/PO
     Route: 048
     Dates: start: 20100319, end: 20100325
  36. CAP VORINOSTAT UNK [Suspect]
     Indication: NODAL MARGINAL ZONE B-CELL LYMPHOMA
     Dosage: 200 MG/BID/PO, 200 MG/DAILY/PO
     Route: 048
     Dates: start: 20100326, end: 20100327
  37. CAP VORINOSTAT UNK [Suspect]
     Indication: NODAL MARGINAL ZONE B-CELL LYMPHOMA
     Dosage: 200 MG/BID/PO, 200 MG/DAILY/PO
     Route: 048
     Dates: start: 20100328, end: 20100329
  38. CAP VORINOSTAT UNK [Suspect]
     Indication: NODAL MARGINAL ZONE B-CELL LYMPHOMA
     Dosage: 200 MG/BID/PO, 200 MG/DAILY/PO
     Route: 048
     Dates: start: 20100330, end: 20100330
  39. CAP VORINOSTAT UNK [Suspect]
     Indication: NODAL MARGINAL ZONE B-CELL LYMPHOMA
     Dosage: 200 MG/BID/PO, 200 MG/DAILY/PO
     Route: 048
     Dates: start: 20100331, end: 20100401
  40. CAP VORINOSTAT UNK [Suspect]
     Indication: NODAL MARGINAL ZONE B-CELL LYMPHOMA
     Dosage: 200 MG/BID/PO, 200 MG/DAILY/PO
     Route: 048
     Dates: start: 20100409, end: 20100411
  41. CAP VORINOSTAT UNK [Suspect]
     Indication: NODAL MARGINAL ZONE B-CELL LYMPHOMA
     Dosage: 200 MG/BID/PO, 200 MG/DAILY/PO
     Route: 048
     Dates: start: 20100412, end: 20100412
  42. CAP VORINOSTAT UNK [Suspect]
     Indication: NODAL MARGINAL ZONE B-CELL LYMPHOMA
     Dosage: 200 MG/BID/PO, 200 MG/DAILY/PO
     Route: 048
     Dates: start: 20100413, end: 20100416
  43. CAP VORINOSTAT UNK [Suspect]
     Indication: NODAL MARGINAL ZONE B-CELL LYMPHOMA
     Dosage: 200 MG/BID/PO, 200 MG/DAILY/PO
     Route: 048
     Dates: start: 20100417, end: 20100417
  44. CAP VORINOSTAT UNK [Suspect]
     Indication: NODAL MARGINAL ZONE B-CELL LYMPHOMA
     Dosage: 200 MG/BID/PO, 200 MG/DAILY/PO
     Route: 048
     Dates: start: 20100418, end: 20100420
  45. CAP VORINOSTAT UNK [Suspect]
     Indication: NODAL MARGINAL ZONE B-CELL LYMPHOMA
     Dosage: 200 MG/BID/PO, 200 MG/DAILY/PO
     Route: 048
     Dates: start: 20100421, end: 20100422
  46. CAP VORINOSTAT UNK [Suspect]
     Indication: NODAL MARGINAL ZONE B-CELL LYMPHOMA
     Dosage: 200 MG/BID/PO, 200 MG/DAILY/PO
     Route: 048
     Dates: start: 20100430, end: 20100506
  47. CAP VORINOSTAT UNK [Suspect]
     Indication: NODAL MARGINAL ZONE B-CELL LYMPHOMA
     Dosage: 200 MG/BID/PO, 200 MG/DAILY/PO
     Route: 048
     Dates: start: 20100507, end: 20100508
  48. CAP VORINOSTAT UNK [Suspect]
     Indication: NODAL MARGINAL ZONE B-CELL LYMPHOMA
     Dosage: 200 MG/BID/PO, 200 MG/DAILY/PO
     Route: 048
     Dates: start: 20100509, end: 20100513
  49. CAP VORINOSTAT UNK [Suspect]
     Indication: NODAL MARGINAL ZONE B-CELL LYMPHOMA
     Dosage: 200 MG/BID/PO, 200 MG/DAILY/PO
     Route: 048
     Dates: start: 20100521, end: 20100522
  50. CAP VORINOSTAT UNK [Suspect]
     Indication: NODAL MARGINAL ZONE B-CELL LYMPHOMA
     Dosage: 200 MG/BID/PO, 200 MG/DAILY/PO
     Route: 048
     Dates: start: 20100523, end: 20100531
  51. CAP VORINOSTAT UNK [Suspect]
     Indication: NODAL MARGINAL ZONE B-CELL LYMPHOMA
     Dosage: 200 MG/BID/PO, 200 MG/DAILY/PO
     Route: 048
     Dates: start: 20100601, end: 20100603
  52. CAP VORINOSTAT UNK [Suspect]
     Indication: NODAL MARGINAL ZONE B-CELL LYMPHOMA
     Dosage: 200 MG/BID/PO, 200 MG/DAILY/PO
     Route: 048
     Dates: start: 20100611, end: 20100624
  53. CAP VORINOSTAT UNK [Suspect]
     Indication: NODAL MARGINAL ZONE B-CELL LYMPHOMA
     Dosage: 200 MG/BID/PO, 200 MG/DAILY/PO
     Route: 048
     Dates: start: 20100702, end: 20100710
  54. CAP VORINOSTAT UNK [Suspect]
     Indication: NODAL MARGINAL ZONE B-CELL LYMPHOMA
     Dosage: 200 MG/BID/PO, 200 MG/DAILY/PO
     Route: 048
     Dates: start: 20100714, end: 20100715
  55. CAP VORINOSTAT UNK [Suspect]
     Indication: NODAL MARGINAL ZONE B-CELL LYMPHOMA
     Dosage: 200 MG/BID/PO, 200 MG/DAILY/PO
     Route: 048
     Dates: start: 20100723, end: 20100728
  56. CAP VORINOSTAT UNK [Suspect]
     Indication: NODAL MARGINAL ZONE B-CELL LYMPHOMA
     Dosage: 200 MG/BID/PO, 200 MG/DAILY/PO
     Route: 048
     Dates: start: 20100729, end: 20100730
  57. CAP VORINOSTAT UNK [Suspect]
     Indication: NODAL MARGINAL ZONE B-CELL LYMPHOMA
     Dosage: 200 MG/BID/PO, 200 MG/DAILY/PO
     Route: 048
     Dates: start: 20100731, end: 20100731
  58. CAP VORINOSTAT UNK [Suspect]
     Indication: NODAL MARGINAL ZONE B-CELL LYMPHOMA
     Dosage: 200 MG/BID/PO, 200 MG/DAILY/PO
     Route: 048
     Dates: start: 20100801, end: 20100801
  59. CAP VORINOSTAT UNK [Suspect]
     Indication: NODAL MARGINAL ZONE B-CELL LYMPHOMA
     Dosage: 200 MG/BID/PO, 200 MG/DAILY/PO
     Route: 048
     Dates: start: 20100803, end: 20100804
  60. HYPOCA [Concomitant]
  61. LIPITOR [Concomitant]
  62. MICARDIS [Concomitant]
  63. KETOPROFEN [Concomitant]
  64. VITAMIN B (UNSPECIFIED) [Concomitant]

REACTIONS (5)
  - DEEP VEIN THROMBOSIS [None]
  - EMBOLISM VENOUS [None]
  - LYMPHADENOPATHY [None]
  - PULMONARY EMBOLISM [None]
  - VENOUS ANEURYSM [None]
